FAERS Safety Report 10464118 (Version 1)
Quarter: 2014Q3

REPORT INFORMATION
  Report Type: Spontaneous
  Country: US (occurrence: US)
  Receive Date: 20140919
  Receipt Date: 20140919
  Transmission Date: 20150326
  Serious: No
  Sender: FDA-Public Use
  Company Number: US-ELI_LILLY_AND_COMPANY-US201409006352

PATIENT
  Age: 63 Year
  Sex: Male

DRUGS (2)
  1. AXIRON [Suspect]
     Active Substance: TESTOSTERONE
     Indication: BLOOD TESTOSTERONE DECREASED
     Dosage: 60 MG, QD
     Route: 062
     Dates: start: 20140521
  2. CIALIS [Concomitant]
     Active Substance: TADALAFIL

REACTIONS (4)
  - Blood testosterone decreased [Unknown]
  - Fatigue [Unknown]
  - Drug ineffective [Unknown]
  - Mood swings [Unknown]

NARRATIVE: CASE EVENT DATE: 20140521
